FAERS Safety Report 9604499 (Version 5)
Quarter: 2014Q1

REPORT INFORMATION
  Report Type: Report from Study
  Country: NL (occurrence: NL)
  Receive Date: 20131008
  Receipt Date: 20140130
  Transmission Date: 20141002
  Serious: Yes (Hospitalization)
  Sender: FDA-Public Use
  Company Number: NL-ASTELLAS-2013US010442

PATIENT
  Age: 59 Year
  Sex: Male

DRUGS (14)
  1. ERLOTINIB TABLET [Suspect]
     Indication: NEOPLASM MALIGNANT
     Dosage: 150 MG, UID/QD
     Route: 048
     Dates: start: 20130905, end: 20130926
  2. ERLOTINIB TABLET [Suspect]
     Dosage: 150 MG, UID/QD
     Route: 048
     Dates: start: 2013, end: 20131010
  3. ANTI-HER3 MAB [Suspect]
     Indication: NEOPLASM MALIGNANT
     Dosage: 2000 MG, 1 IN 14 DAYS
     Route: 042
     Dates: start: 20130905, end: 20130926
  4. ANTI-HER3 MAB [Suspect]
     Dosage: 2000 MG, 1 IN 14 DAYS
     Route: 042
     Dates: start: 2013, end: 20131010
  5. THYRAX                             /00068001/ [Concomitant]
     Indication: PRODUCT USED FOR UNKNOWN INDICATION
     Dosage: 25 UG, UID/QD
     Route: 065
     Dates: start: 20130917, end: 20131003
  6. THYRAX                             /00068001/ [Concomitant]
     Dosage: 37.5 UG, UNKNOWN/D
     Dates: start: 20131004
  7. DEPAKINE                           /00228502/ [Concomitant]
     Indication: PRODUCT USED FOR UNKNOWN INDICATION
     Dosage: 2000 MG, UID/QD
     Route: 065
     Dates: start: 2006
  8. KEPPRA [Concomitant]
     Indication: PRODUCT USED FOR UNKNOWN INDICATION
     Dosage: 200 MG, UNKNOWN/D
     Route: 065
     Dates: start: 2006
  9. GABAPENTIN [Concomitant]
     Indication: PRODUCT USED FOR UNKNOWN INDICATION
     Dosage: 1200 MG, UID/QD
     Route: 065
     Dates: start: 2006
  10. BISOPROLOL [Concomitant]
     Indication: PRODUCT USED FOR UNKNOWN INDICATION
     Dosage: 5 MG, UNKNOWN/D
     Route: 065
  11. AMIODARONE [Concomitant]
     Indication: PRODUCT USED FOR UNKNOWN INDICATION
     Dosage: 200 MG, UNKNOWN/D
     Route: 065
     Dates: start: 2006
  12. NADROPARIN CALCIUM [Concomitant]
     Indication: PRODUCT USED FOR UNKNOWN INDICATION
     Dosage: 19000 IU, UNKNOWN/D
     Route: 065
     Dates: start: 2006
  13. METOCLOPRAMIDE [Concomitant]
     Indication: PRODUCT USED FOR UNKNOWN INDICATION
     Dosage: 80 MG, UNKNOWN/D
     Route: 065
     Dates: start: 20130917
  14. UREA [Concomitant]
     Indication: PRODUCT USED FOR UNKNOWN INDICATION
     Dosage: UNK
     Route: 065

REACTIONS (3)
  - Enteritis infectious [Recovered/Resolved]
  - Dehydration [Recovered/Resolved]
  - Hyponatraemia [Unknown]
